FAERS Safety Report 14680031 (Version 1)
Quarter: 2018Q1

REPORT INFORMATION
  Report Type: Spontaneous
  Country: FR (occurrence: FR)
  Receive Date: 20180326
  Receipt Date: 20180326
  Transmission Date: 20180509
  Serious: Yes (Hospitalization)
  Sender: FDA-Public Use
  Company Number: FR-JNJFOC-20180330110

PATIENT
  Age: 15 Year
  Sex: Female
  Weight: 48 kg

DRUGS (2)
  1. RISPERDAL [Suspect]
     Active Substance: RISPERIDONE
     Indication: DISSOCIATIVE DISORDER
     Route: 048
     Dates: start: 20171231, end: 20180105
  2. TERCIAN [Suspect]
     Active Substance: CYAMEMAZINE
     Indication: DISSOCIATIVE DISORDER
     Route: 048
     Dates: start: 20171230, end: 20180105

REACTIONS (1)
  - Catatonia [Recovered/Resolved]

NARRATIVE: CASE EVENT DATE: 20180103
